FAERS Safety Report 20751149 (Version 1)
Quarter: 2022Q2

REPORT INFORMATION
  Report Type: Spontaneous
  Country: EG (occurrence: EG)
  Receive Date: 20220426
  Receipt Date: 20220426
  Transmission Date: 20220721
  Serious: Yes (Death)
  Sender: FDA-Public Use
  Company Number: EG-PFIZER INC-202200618245

PATIENT
  Age: 75 Year
  Sex: Female

DRUGS (3)
  1. XALKORI [Suspect]
     Active Substance: CRIZOTINIB
     Indication: Renal cell carcinoma
     Dosage: 250 MG, 2X/DAY
     Route: 048
     Dates: start: 20220223
  2. OSTEOCARE [CALCIUM;COLECALCIFEROL;MAGNESIUM;ZINC] [Concomitant]
     Dosage: 1 DF, 1X/DAY  AFTER BREAKFAST
  3. XGEVA [Concomitant]
     Active Substance: DENOSUMAB
     Dosage: 1 DF, 1 VIAL EVERY 4 WEEKS
     Route: 058

REACTIONS (1)
  - Death [Fatal]
